FAERS Safety Report 10177683 (Version 1)
Quarter: 2014Q2

REPORT INFORMATION
  Report Type: Spontaneous
  Country: US (occurrence: US)
  Receive Date: 20140516
  Receipt Date: 20140516
  Transmission Date: 20141212
  Serious: No
  Sender: FDA-Public Use
  Company Number: US-SA-2014SA006695

PATIENT
  Age: 59 Year
  Sex: Female

DRUGS (1)
  1. APIDRA [Suspect]
     Indication: TYPE 2 DIABETES MELLITUS
     Dosage: DOSE:33 UNIT(S)
     Route: 058

REACTIONS (2)
  - Feeling abnormal [Recovered/Resolved]
  - Injection site pruritus [Recovered/Resolved]
